FAERS Safety Report 4936422-X (Version None)
Quarter: 2006Q1

REPORT INFORMATION
  Report Type: 
  Country: None (occurrence: None)
  Receive Date: 20060127
  Receipt Date: 20051201
  Transmission Date: 20060701
  Serious: Yes (Other)
  Sender: FDA-Public Use
  Company Number: 2005164585

PATIENT
  Age: 67 Year
  Sex: Female
  Weight: 68.0396 kg

DRUGS (11)
  1. LYRICA [Suspect]
     Indication: PAIN IN EXTREMITY
     Dosage: 150 MG (75 MG, 2 IN 1 D), ORAL
     Route: 048
     Dates: start: 20051128, end: 20051201
  2. SYNTHROID [Concomitant]
  3. PLAVIX [Concomitant]
  4. TOPROL-XL [Concomitant]
  5. ASPIRIN [Concomitant]
  6. REGLAN [Concomitant]
  7. ATACAND [Concomitant]
  8. ZOLOFT [Concomitant]
  9. PRILOSEC [Concomitant]
  10. OS-CAL D (CALCIUM CARBONATE, COLECALCIFEROL) [Concomitant]
  11. DETROL [Concomitant]

REACTIONS (2)
  - HYPOAESTHESIA ORAL [None]
  - SWELLING FACE [None]
